FAERS Safety Report 24270432 (Version 3)
Quarter: 2024Q3

REPORT INFORMATION
  Report Type: Report from Study
  Country: IN (occurrence: IN)
  Receive Date: 20240830
  Receipt Date: 20240925
  Transmission Date: 20241017
  Serious: Yes (Death)
  Sender: ABBVIE
  Company Number: IN-ABBVIE-5900841

PATIENT
  Age: 57 Year
  Sex: Female

DRUGS (6)
  1. BOTOX [Suspect]
     Active Substance: ONABOTULINUMTOXINA
     Indication: Muscle spasticity
     Dosage: TIME INTERVAL: AS NECESSARY: 50 IU (INTERNATIONAL UNIT)?FREQUENCY TEXT: MINIMUM ONCE IN 3 MONTHS
     Route: 030
     Dates: start: 20230412, end: 20230412
  2. BOTOX [Suspect]
     Active Substance: ONABOTULINUMTOXINA
     Indication: Muscle spasticity
     Dosage: TIME INTERVAL: AS NECESSARY: 50 IU (INTERNATIONAL UNIT)?FREQUENCY TEXT: MINIMUM ONCE IN 3 MONTHS
     Route: 030
     Dates: start: 20231010, end: 20231010
  3. ASPIRIN [Concomitant]
     Active Substance: ASPIRIN
     Indication: Product used for unknown indication
     Dates: start: 20230926
  4. LIOFEN [Concomitant]
     Indication: Product used for unknown indication
     Dates: start: 20230926
  5. ATORVASTATIN [Concomitant]
     Active Substance: ATORVASTATIN
     Indication: Product used for unknown indication
     Dates: start: 20230926
  6. Brevipil [Concomitant]
     Indication: Product used for unknown indication
     Dates: start: 20230926

REACTIONS (2)
  - Hypophagia [Fatal]
  - Asthenia [Fatal]
